FAERS Safety Report 21242834 (Version 1)
Quarter: 2022Q3

REPORT INFORMATION
  Report Type: Spontaneous
  Country: AU (occurrence: AU)
  Receive Date: 20220823
  Receipt Date: 20220823
  Transmission Date: 20221027
  Serious: Yes (Other)
  Sender: FDA-Public Use
  Company Number: AU-SAMSUNG BIOEPIS-SB-2022-20726

PATIENT
  Age: 55 Year
  Sex: Female

DRUGS (2)
  1. TRASTUZUMAB [Suspect]
     Active Substance: TRASTUZUMAB
     Indication: Invasive ductal breast carcinoma
     Dosage: UNKNOWN (LAST ADJUVANT TRASTUZUMAB DOSE WAS TWO WEEKS PRIOR TO PRESENTATION AND FIVE MONTHS AFTER IN
     Route: 065
  2. TRASTUZUMAB [Suspect]
     Active Substance: TRASTUZUMAB
     Indication: HER2 positive breast cancer

REACTIONS (5)
  - Myopericarditis [Recovered/Resolved]
  - Pericardial effusion [Unknown]
  - Pericarditis [Unknown]
  - Atrial fibrillation [Unknown]
  - Toxicity to various agents [Unknown]
